FAERS Safety Report 11856200 (Version 1)
Quarter: 2015Q4

REPORT INFORMATION
  Report Type: Spontaneous
  Country: US (occurrence: US)
  Receive Date: 20151221
  Receipt Date: 20151221
  Transmission Date: 20160305
  Serious: No
  Sender: FDA-Public Use
  Company Number: US-MYLANLABS-2015M1022753

PATIENT
  Sex: Female

DRUGS (2)
  1. LEVETIRACETAM TABLETS, USP [Suspect]
     Active Substance: LEVETIRACETAM
     Dosage: 500 MG, BID
     Route: 048
     Dates: start: 201506, end: 201506
  2. LEVETIRACETAM TABLETS, USP [Suspect]
     Active Substance: LEVETIRACETAM
     Indication: SEIZURE
     Dosage: 1000 MG, BID
     Route: 048
     Dates: start: 201506

REACTIONS (2)
  - Pruritus generalised [Not Recovered/Not Resolved]
  - Fatigue [Not Recovered/Not Resolved]

NARRATIVE: CASE EVENT DATE: 201506
